FAERS Safety Report 11031612 (Version 1)
Quarter: 2015Q2

REPORT INFORMATION
  Report Type: Spontaneous
  Country: US (occurrence: US)
  Receive Date: 20150415
  Receipt Date: 20150415
  Transmission Date: 20150821
  Serious: No
  Sender: FDA-Public Use
  Company Number: US-SA-2014SA102404

PATIENT
  Age: 52 Year
  Sex: Female
  Weight: 68 kg

DRUGS (5)
  1. VISTARIL [Concomitant]
     Active Substance: HYDROXYZINE PAMOATE
  2. FLEXERIL [Concomitant]
     Active Substance: CYCLOBENZAPRINE HYDROCHLORIDE
  3. DEMEROL [Suspect]
     Active Substance: MEPERIDINE HYDROCHLORIDE
     Indication: CANCER PAIN
     Dosage: DOSE: EVERY 4 TO 6 HOURS AS NEEDED
     Route: 065
  4. DEMEROL [Suspect]
     Active Substance: MEPERIDINE HYDROCHLORIDE
     Indication: CANCER PAIN
     Dosage: DOSE: EVERY 4 TO 6 HOURS AS NEEDED
     Route: 065
     Dates: start: 20140915
  5. LORAZEPAM. [Concomitant]
     Active Substance: LORAZEPAM
     Indication: PANIC ATTACK

REACTIONS (2)
  - Drug ineffective [Unknown]
  - Panic attack [Not Recovered/Not Resolved]
